FAERS Safety Report 5370277-7 (Version None)
Quarter: 2007Q2

REPORT INFORMATION
  Report Type: 
  Country: None (occurrence: None)
  Receive Date: 20070625
  Receipt Date: 20070625
  Transmission Date: 20071010
  Serious: Yes (Other)
  Sender: FDA-Public Use
  Company Number: None

PATIENT
  Sex: Female

DRUGS (2)
  1. AMIFOSTINE [Suspect]
     Indication: RADIOTHERAPY
     Dosage: 500 MGM SQ DAILY MONDAY THRU FRIDAY X 10 DOSES APPROXIMATELY
     Route: 058
  2. LIDOCAINE [Concomitant]

REACTIONS (2)
  - RASH [None]
  - URTICARIA [None]
